FAERS Safety Report 13882673 (Version 1)
Quarter: 2017Q3

REPORT INFORMATION
  Report Type: Spontaneous
  Country: DE (occurrence: DE)
  Receive Date: 20170818
  Receipt Date: 20170818
  Transmission Date: 20171127
  Serious: Yes (Hospitalization)
  Sender: FDA-Public Use
  Company Number: PHHY2017DE121639

PATIENT
  Age: 36 Year
  Sex: Female

DRUGS (2)
  1. IMIPENEM AND CILASTATIN [Concomitant]
     Active Substance: CILASTATIN SODIUM\IMIPENEM
     Indication: PRODUCT USED FOR UNKNOWN INDICATION
     Dosage: UNK
     Route: 065
  2. CLOMIPRAMINE [Suspect]
     Active Substance: CLOMIPRAMINE
     Indication: SCHIZOAFFECTIVE DISORDER
     Dosage: UNK
     Route: 065

REACTIONS (11)
  - Nausea [Unknown]
  - Hypocalcaemia [Recovering/Resolving]
  - Pancreatitis [Recovered/Resolved]
  - Pyrexia [Unknown]
  - Abdominal pain upper [Unknown]
  - Abdominal distension [Unknown]
  - Hypertriglyceridaemia [Recovering/Resolving]
  - Pseudohyponatraemia [Recovering/Resolving]
  - Respiratory failure [Unknown]
  - Tachycardia [Unknown]
  - Leukocytosis [Unknown]
